FAERS Safety Report 5758096-0 (Version None)
Quarter: 2008Q2

REPORT INFORMATION
  Report Type: 
  Country: None (occurrence: None)
  Receive Date: 20080530
  Receipt Date: 20080513
  Transmission Date: 20081010
  Serious: Yes (Disabling)
  Sender: FDA-Public Use
  Company Number: 20080137 /

PATIENT
  Age: 50 Year
  Sex: Female

DRUGS (1)
  1. METHYLENE BLUE INJECTION, USP (0301-10) 1% [Suspect]
     Indication: DIAGNOSTIC PROCEDURE
     Dosage: INTRATHECAL
     Route: 037

REACTIONS (10)
  - ARACHNOIDITIS [None]
  - CAUDA EQUINA SYNDROME [None]
  - FAECAL INCONTINENCE [None]
  - GAIT DISTURBANCE [None]
  - HYPOAESTHESIA [None]
  - IATROGENIC INJURY [None]
  - PAIN [None]
  - SEXUAL DYSFUNCTION [None]
  - URINARY INCONTINENCE [None]
  - WRONG DRUG ADMINISTERED [None]
